FAERS Safety Report 7061885-6 (Version None)
Quarter: 2010Q4

REPORT INFORMATION
  Report Type: 
  Country: None (occurrence: None)
  Receive Date: 20101026
  Receipt Date: 20101015
  Transmission Date: 20110411
  Serious: Yes (Other)
  Sender: FDA-Public Use
  Company Number: US-ELI_LILLY_AND_COMPANY-US201009001745

PATIENT
  Sex: Female

DRUGS (2)
  1. FORTEO [Suspect]
     Indication: OSTEOPOROSIS
     Dosage: 20 UG, DAILY (1/D)
     Route: 058
     Dates: start: 20100628
  2. THYROID PREPARATIONS [Concomitant]
     Indication: THYROID DISORDER
     Dosage: UNK, UNKNOWN
     Route: 065

REACTIONS (3)
  - FALL [None]
  - INTERVERTEBRAL DISC PROTRUSION [None]
  - SPINAL COLUMN STENOSIS [None]
